FAERS Safety Report 15020800 (Version 1)
Quarter: 2018Q2

REPORT INFORMATION
  Report Type: Spontaneous
  Country: US (occurrence: US)
  Receive Date: 20180618
  Receipt Date: 20180618
  Transmission Date: 20180711
  Serious: No
  Sender: FDA-Public Use
  Company Number: US-PFIZER INC-2018243417

PATIENT
  Age: 55 Year
  Sex: Female
  Weight: 52.16 kg

DRUGS (1)
  1. LYRICA [Suspect]
     Active Substance: PREGABALIN
     Indication: BONE PAIN
     Dosage: 75 MG, 2X/DAY(25MG 3 CAPSULES OR TABLETS TWICE A DAY)
     Dates: start: 201805

REACTIONS (3)
  - Pruritus [Recovering/Resolving]
  - Product use in unapproved indication [Unknown]
  - Pain [Recovering/Resolving]

NARRATIVE: CASE EVENT DATE: 2018
